FAERS Safety Report 8502008-3 (Version None)
Quarter: 2012Q2

REPORT INFORMATION
  Report Type: 
  Country: None (occurrence: None)
  Receive Date: 20120405
  Receipt Date: 20110406
  Transmission Date: 20120825
  Serious: Yes (Other)
  Sender: FDA-Public Use
  Company Number: PHHY2011US29012

PATIENT
  Age: 77 Year
  Sex: Female

DRUGS (20)
  1. OMEPRAZOLE [Concomitant]
  2. SENE S [Concomitant]
  3. SIMVASTATIN [Concomitant]
  4. RECLAST [Suspect]
     Dosage: 5 MG,,INTRAVENOUS
     Route: 042
     Dates: start: 20101201
  5. ASPIRIN [Concomitant]
  6. MAGNESIUM OXIDE [Concomitant]
  7. OSCAL D [Concomitant]
  8. TOPROL-XL [Concomitant]
  9. HYDROCODENE [Concomitant]
  10. BUMEX [Concomitant]
  11. WARFARIN SODIUM [Concomitant]
  12. VITAMIN B12 [Concomitant]
  13. MULTIVITAMIN [Concomitant]
  14. FENTANYL [Concomitant]
  15. AMIODARONE HCL [Concomitant]
  16. IRON [Concomitant]
  17. SPIRONOLACTONE [Concomitant]
  18. ADVAIR HFA [Concomitant]
  19. FLECAINIDE ACETATE [Concomitant]
  20. LEVOTHYROXINE SODIUM [Concomitant]

REACTIONS (3)
  - ARTHRALGIA [None]
  - ATRIAL FIBRILLATION [None]
  - PAIN [None]
